FAERS Safety Report 23629092 (Version 1)
Quarter: 2024Q1

REPORT INFORMATION
  Report Type: Spontaneous
  Country: US (occurrence: US)
  Receive Date: 20240313
  Receipt Date: 20240313
  Transmission Date: 20240410
  Serious: Yes (Other)
  Sender: FDA-Public Use
  Company Number: US-Breckenridge Pharmaceutical, Inc.-2154380

PATIENT
  Age: 71 Year
  Sex: Female

DRUGS (5)
  1. ESTRADIOL\NORETHINDRONE ACETATE [Suspect]
     Active Substance: ESTRADIOL\NORETHINDRONE ACETATE
     Route: 048
  2. XANAX [Concomitant]
     Active Substance: ALPRAZOLAM
  3. ATORVASTATIN CALCIUM [Concomitant]
     Active Substance: ATORVASTATIN CALCIUM
  4. PEPTO-BISMOL [Concomitant]
     Active Substance: BISMUTH SUBSALICYLATE
  5. METOPROLOL [Concomitant]
     Active Substance: METOPROLOL

REACTIONS (6)
  - Benign ovarian tumour [Unknown]
  - Product use in unapproved indication [Unknown]
  - Drug withdrawal syndrome [Unknown]
  - Chills [Unknown]
  - Hyperhidrosis [Unknown]
  - Burning sensation [Unknown]
